FAERS Safety Report 13657057 (Version 1)
Quarter: 2017Q2

REPORT INFORMATION
  Report Type: Spontaneous
  Country: JP (occurrence: JP)
  Receive Date: 20170615
  Receipt Date: 20170615
  Transmission Date: 20170830
  Serious: Yes (Hospitalization)
  Sender: FDA-Public Use
  Company Number: JP-BAYER-2017-079485

PATIENT
  Age: 86 Year
  Sex: Female
  Weight: 44.1 kg

DRUGS (14)
  1. IOPAMIRON [Suspect]
     Active Substance: IOPAMIDOL
     Indication: COMPUTERISED TOMOGRAM ABDOMEN
     Dosage: 65 ML, ONCE, (AT 2 ML/SEC.)
     Route: 040
     Dates: start: 20170425, end: 20170425
  2. PARIET [Suspect]
     Active Substance: RABEPRAZOLE SODIUM
     Dosage: 10 MG, QD
     Route: 048
  3. AZILSARTAN [Suspect]
     Active Substance: AZILSARTAN KAMEDOXOMIL
     Dosage: 20 MG, QD
     Route: 048
  4. LIVALO [Suspect]
     Active Substance: PITAVASTATIN CALCIUM
     Dosage: 1 MG, QD
     Route: 048
  5. SIGMART [Suspect]
     Active Substance: NICORANDIL
     Dosage: 10 MG, QD
     Route: 048
  6. LYRICA [Suspect]
     Active Substance: PREGABALIN
     Dosage: 150 MG, QD
     Route: 048
  7. METHYCOBAL [Suspect]
     Active Substance: METHYLCOBALAMIN
     Dosage: 1500 ?G, QD
     Route: 048
  8. HANGEKOUBOKUTOU [Suspect]
     Active Substance: HERBALS
     Dosage: 7.5 G, QD
     Route: 048
  9. BAYASPIRIN 100 MG [Suspect]
     Active Substance: ASPIRIN
     Dosage: 100 MG, QD
     Route: 048
  10. IOPAMIRON [Suspect]
     Active Substance: IOPAMIDOL
     Indication: COLON CANCER
  11. ALFAROL [Suspect]
     Active Substance: ALFACALCIDOL
     Dosage: 1 ?G, QD
     Route: 048
  12. TSUMURA DAISAIKOTOU [Suspect]
     Active Substance: HERBALS
     Dosage: 7.5 G, QD
     Route: 048
  13. ADALAT CC [Suspect]
     Active Substance: NIFEDIPINE
     Dosage: 40 MG, QD
     Route: 048
  14. URSO [Suspect]
     Active Substance: URSODIOL
     Dosage: 200 MG, QD
     Route: 048

REACTIONS (4)
  - Dizziness [Recovered/Resolved]
  - Altered state of consciousness [Recovered/Resolved]
  - Blood pressure immeasurable [Recovered/Resolved]
  - Contrast media allergy [Recovered/Resolved]

NARRATIVE: CASE EVENT DATE: 20170425
